FAERS Safety Report 5951086-4 (Version None)
Quarter: 2008Q4

REPORT INFORMATION
  Report Type: 
  Country: None (occurrence: None)
  Receive Date: 20081112
  Receipt Date: 20081112
  Transmission Date: 20090506
  Serious: Yes (Life-Threatening, Hospitalization, Disabling)
  Sender: FDA-Public Use
  Company Number: None

PATIENT
  Sex: Male
  Weight: 92.9874 kg

DRUGS (7)
  1. LEVAQUIN [Suspect]
     Indication: PERITONITIS
     Dosage: 500MG  Q48HR PO
     Route: 048
     Dates: start: 20080524, end: 20080602
  2. CLINDAMYCIN HCL [Concomitant]
  3. VORICONAZOLE [Concomitant]
  4. ELAVIL [Concomitant]
  5. NEXIUM [Concomitant]
  6. POTASSIUM CHLORIDE [Concomitant]
  7. MULTIPLE PSYCHIATRIC MEDICATIONS [Concomitant]

REACTIONS (1)
  - RESPIRATORY DEPRESSION [None]
